FAERS Safety Report 14759093 (Version 6)
Quarter: 2025Q1

REPORT INFORMATION
  Report Type: Spontaneous
  Country: HU (occurrence: HU)
  Receive Date: 20180413
  Receipt Date: 20250109
  Transmission Date: 20250409
  Serious: Yes (Other)
  Sender: MYLAN
  Company Number: HU-TEVA-807017ISR

PATIENT
  Age: 47 Year
  Sex: Female

DRUGS (8)
  1. PEMETREXED [Suspect]
     Active Substance: PEMETREXED
     Indication: Lung adenocarcinoma stage III
     Route: 065
     Dates: start: 201602, end: 201605
  2. PEMETREXED [Suspect]
     Active Substance: PEMETREXED
     Route: 065
     Dates: start: 201605, end: 2016
  3. PEMETREXED [Suspect]
     Active Substance: PEMETREXED
     Route: 065
     Dates: start: 2016, end: 2016
  4. CISPLATIN [Suspect]
     Active Substance: CISPLATIN
     Indication: Lung adenocarcinoma
     Route: 065
     Dates: start: 2016, end: 2016
  5. CISPLATIN [Suspect]
     Active Substance: CISPLATIN
     Indication: Lung adenocarcinoma stage III
     Route: 065
     Dates: start: 201602, end: 201605
  6. CISPLATIN [Suspect]
     Active Substance: CISPLATIN
     Route: 065
     Dates: start: 201605
  7. DOCETAXEL [Suspect]
     Active Substance: DOCETAXEL
     Indication: Lung adenocarcinoma
     Route: 065
     Dates: start: 201605, end: 201605
  8. DOCETAXEL [Suspect]
     Active Substance: DOCETAXEL
     Indication: Lung adenocarcinoma stage III

REACTIONS (5)
  - Metastases to adrenals [Recovering/Resolving]
  - Malignant neoplasm progression [Recovering/Resolving]
  - Lung adenocarcinoma [Recovering/Resolving]
  - Hypersensitivity [Unknown]
  - Anaemia [Unknown]

NARRATIVE: CASE EVENT DATE: 20160101
